FAERS Safety Report 6530627-2 (Version None)
Quarter: 2010Q1

REPORT INFORMATION
  Report Type: 
  Country: None (occurrence: None)
  Receive Date: 20100108
  Receipt Date: 20100105
  Transmission Date: 20100710
  Serious: Yes (Hospitalization)
  Sender: FDA-Public Use
  Company Number: BR-BIOGENIDEC-2010BI000453

PATIENT
  Sex: Female

DRUGS (4)
  1. AVONEX [Suspect]
     Indication: MULTIPLE SCLEROSIS
     Route: 030
     Dates: start: 20091030, end: 20091205
  2. AVONEX [Suspect]
     Route: 030
     Dates: start: 20091201
  3. PURIN T4 (I-THYROXINE SODIUM) [Concomitant]
     Indication: HYPOPHYSECTOMY
     Route: 048
  4. CINCORDIL (ISOSORBIDE MONONITRATE) [Concomitant]
     Indication: CARDIAC OPERATION
     Route: 048

REACTIONS (5)
  - ABASIA [None]
  - DECREASED APPETITE [None]
  - INSOMNIA [None]
  - MALAISE [None]
  - THIRST [None]
